FAERS Safety Report 16681249 (Version 1)
Quarter: 2019Q3

REPORT INFORMATION
  Report Type: Report from Study
  Country: ES (occurrence: ES)
  Receive Date: 20190808
  Receipt Date: 20190808
  Transmission Date: 20191004
  Serious: Yes (Death, Hospitalization)
  Sender: FDA-Public Use
  Company Number: ES-TEVA-2019-ES-1087542

PATIENT
  Age: 80 Year
  Sex: Male

DRUGS (6)
  1. CICLOSPORINA (406A) [Suspect]
     Active Substance: CYCLOSPORINE
     Indication: SOLID ORGAN TRANSPLANT
     Dosage: 150 MILLIGRAM/DAYS
     Route: 048
     Dates: start: 201408, end: 20190307
  2. PARICALCITOL (2860A) [Concomitant]
     Indication: HYPOTHYROIDISM
     Dosage: 1 MICROGRAM/DAYS
     Route: 048
     Dates: start: 201408, end: 20190307
  3. PREDNISONA (886A) [Interacting]
     Active Substance: PREDNISONE
     Indication: SOLID ORGAN TRANSPLANT
     Dosage: 5 MILLIGRAM/DAYS
     Route: 048
     Dates: start: 201311, end: 20190307
  4. MYFORTIC [Interacting]
     Active Substance: MYCOPHENOLATE SODIUM
     Indication: SOLID ORGAN TRANSPLANT
     Route: 048
     Dates: start: 201408, end: 20190307
  5. DOXAZOSINA (2387A) [Concomitant]
     Active Substance: DOXAZOSIN MESYLATE
     Indication: HYPERTENSION
     Dosage: 4 MILLIGRAM/DAYS
     Route: 048
     Dates: start: 201408, end: 20190307
  6. ENOXAPARINA SODICA (2482SO) [Concomitant]
     Active Substance: ENOXAPARIN SODIUM
     Indication: ATRIAL FIBRILLATION
     Dosage: 60 MILLIGRAM/DAYS
     Route: 058
     Dates: start: 2018, end: 20190307

REACTIONS (2)
  - Pneumonia cytomegaloviral [Fatal]
  - Drug interaction [Unknown]

NARRATIVE: CASE EVENT DATE: 20190304
